FAERS Safety Report 18519598 (Version 1)
Quarter: 2020Q4

REPORT INFORMATION
  Report Type: Spontaneous
  Country: US (occurrence: US)
  Receive Date: 20201118
  Receipt Date: 20201118
  Transmission Date: 20210114
  Serious: No
  Sender: FDA-Public Use
  Company Number: US-009507513-2011USA010229

PATIENT
  Sex: Male

DRUGS (10)
  1. LISINOPRIL. [Concomitant]
     Active Substance: LISINOPRIL
     Route: 048
  2. IRON (UNSPECIFIED) [Concomitant]
     Active Substance: IRON
  3. COENZYME Q10 PLUS VITAMIN E [Concomitant]
  4. LUCENTIS [Concomitant]
     Active Substance: RANIBIZUMAB
  5. METFORMIN [Concomitant]
     Active Substance: METFORMIN HYDROCHLORIDE
  6. LASIX [Concomitant]
     Active Substance: FUROSEMIDE
  7. LANTUS [Concomitant]
     Active Substance: INSULIN GLARGINE
  8. DECADRON [Suspect]
     Active Substance: DEXAMETHASONE
     Route: 048
  9. METOPROLOL. [Concomitant]
     Active Substance: METOPROLOL
  10. NOVOLOG [Concomitant]
     Active Substance: INSULIN ASPART

REACTIONS (1)
  - Hypersensitivity [Unknown]
